FAERS Safety Report 17227972 (Version 6)
Quarter: 2022Q3

REPORT INFORMATION
  Report Type: Report from Study
  Country: CA (occurrence: CA)
  Receive Date: 20200103
  Receipt Date: 20220708
  Transmission Date: 20221027
  Serious: Yes (Hospitalization)
  Sender: FDA-Public Use
  Company Number: CA-GLAXOSMITHKLINE-CA2019AMR238416

PATIENT

DRUGS (5)
  1. MEPOLIZUMAB [Suspect]
     Active Substance: MEPOLIZUMAB
     Indication: Asthma
     Dosage: 100 MG, Z (MONTHLY)
     Route: 042
     Dates: start: 20190718, end: 20191120
  2. MEPOLIZUMAB [Suspect]
     Active Substance: MEPOLIZUMAB
     Indication: Asthma
     Dosage: 100 MG, Z (EVERY 4 WEEKS)
     Route: 058
     Dates: start: 20190718
  3. VENTOLIN [Suspect]
     Active Substance: ALBUTEROL SULFATE
     Indication: Product used for unknown indication
     Dosage: UNK
  4. ADVAIR HFA [Suspect]
     Active Substance: FLUTICASONE PROPIONATE\SALMETEROL XINAFOATE
     Indication: Product used for unknown indication
     Dosage: UNK
  5. CODEINE [Suspect]
     Active Substance: CODEINE
     Indication: Product used for unknown indication
     Dosage: UNK

REACTIONS (8)
  - Hospitalisation [Unknown]
  - Sleep disorder due to a general medical condition [Recovered/Resolved]
  - Asthma [Recovering/Resolving]
  - Loss of personal independence in daily activities [Unknown]
  - Dyspnoea [Recovering/Resolving]
  - Wheezing [Unknown]
  - Drug hypersensitivity [Unknown]
  - Nasopharyngitis [Unknown]
